FAERS Safety Report 17272303 (Version 1)
Quarter: 2020Q1

REPORT INFORMATION
  Report Type: Spontaneous
  Country: US (occurrence: US)
  Receive Date: 20200114
  Receipt Date: 20200114
  Transmission Date: 20200409
  Serious: No
  Sender: FDA-Public Use
  Company Number: None

PATIENT
  Sex: Male

DRUGS (1)
  1. FEBUXOSTAT 80MG [Suspect]
     Active Substance: FEBUXOSTAT

REACTIONS (3)
  - Peripheral swelling [None]
  - Erythema [None]
  - Oedema [None]
